FAERS Safety Report 8376497-1 (Version None)
Quarter: 2012Q2

REPORT INFORMATION
  Report Type: 
  Country: None (occurrence: None)
  Receive Date: 20120522
  Receipt Date: 20120517
  Transmission Date: 20120825
  Serious: Yes (Death, Hospitalization, Other)
  Sender: FDA-Public Use
  Company Number: PL-CELGENEUS-129-CCAZA-12042521

PATIENT
  Sex: Female
  Weight: 43 kg

DRUGS (2)
  1. AZACITIDINE [Suspect]
     Route: 058
  2. AZACITIDINE [Suspect]
     Dosage: 91.5 MILLIGRAM/SQ. METER
     Route: 058
     Dates: start: 20120418, end: 20120423

REACTIONS (2)
  - PSEUDOMEMBRANOUS COLITIS [None]
  - PNEUMONIA [None]
